FAERS Safety Report 15579951 (Version 2)
Quarter: 2018Q4

REPORT INFORMATION
  Report Type: Spontaneous
  Country: IR (occurrence: IR)
  Receive Date: 20181102
  Receipt Date: 20181120
  Transmission Date: 20190205
  Serious: Yes (Hospitalization, Other)
  Sender: FDA-Public Use
  Company Number: IR-SA-2018SA300799

PATIENT
  Sex: Male
  Weight: 69 kg

DRUGS (2)
  1. MYOZYME [Suspect]
     Active Substance: ALGLUCOSIDASE ALFA
     Indication: GLYCOGEN STORAGE DISEASE TYPE II
     Dosage: 50 MG/KG, UNK
     Route: 041
  2. MYOZYME [Suspect]
     Active Substance: ALGLUCOSIDASE ALFA
     Dosage: 20 MG/KG, QOW
     Route: 041
     Dates: start: 20171210, end: 20181025

REACTIONS (5)
  - Tachypnoea [Recovered/Resolved]
  - Cough [Recovered/Resolved]
  - Respiratory failure [Recovered/Resolved]
  - Dyspnoea [Recovered/Resolved]
  - Tachycardia [Recovered/Resolved]

NARRATIVE: CASE EVENT DATE: 20181010
